FAERS Safety Report 15671385 (Version 3)
Quarter: 2019Q1

REPORT INFORMATION
  Report Type: Report from Study
  Country: GB (occurrence: GB)
  Receive Date: 20181129
  Receipt Date: 20190205
  Transmission Date: 20190417
  Serious: Yes (Hospitalization)
  Sender: FDA-Public Use
  Company Number: GB-AMGEN-GBRCT2018120484

PATIENT
  Age: 12 Year
  Sex: Male
  Weight: 37.4 kg

DRUGS (32)
  1. CYCLOPHOSPHAMIDE. [Suspect]
     Active Substance: CYCLOPHOSPHAMIDE
     Indication: ACUTE LYMPHOCYTIC LEUKAEMIA
     Dosage: 1200 MG, UNK
     Route: 065
     Dates: start: 20180807
  2. PEG/L-ASPARAGINASE [Concomitant]
     Active Substance: PEGASPARGASE
     Indication: ACUTE LYMPHOCYTIC LEUKAEMIA
     Dosage: 3150 UNK, UNK
     Dates: start: 20180624
  3. ONDANSETRON [Concomitant]
     Active Substance: ONDANSETRON
     Dosage: 6-8 MG, UNK
     Dates: start: 20180621, end: 20180625
  4. HYOSCINE BUTYLBROMIDE [Concomitant]
     Active Substance: BUTYLSCOPOLAMINE
     Dosage: 20 MG, UNK
     Route: 042
     Dates: start: 20180625, end: 20180625
  5. ESOMEPRAZOLE. [Concomitant]
     Active Substance: ESOMEPRAZOLE MAGNESIUM
     Dosage: 40 MG, UNK
     Route: 042
     Dates: start: 20180625, end: 20180707
  6. HYDROXYCARBAMIDE [Concomitant]
     Active Substance: HYDROXYUREA
     Dosage: 600 MG, UNK
     Route: 048
     Dates: start: 20180615, end: 20180620
  7. FUROSIMIDE [Concomitant]
     Active Substance: FUROSEMIDE
     Dosage: 20 MG, UNK
     Route: 042
     Dates: start: 20180616, end: 20180616
  8. CARFILZOMIB [Suspect]
     Active Substance: CARFILZOMIB
     Indication: ACUTE LYMPHOCYTIC LEUKAEMIA
     Dosage: 54 MG, PER CHEMO REGIM
     Route: 042
     Dates: start: 20180621
  9. COTRIMOXAZOLE [Concomitant]
     Active Substance: SULFAMETHOXAZOLE\TRIMETHOPRIM
     Dosage: 800 MG, UNK
     Route: 042
     Dates: start: 20180708, end: 20180710
  10. VINCRISTINE [Suspect]
     Active Substance: VINCRISTINE
     Indication: ACUTE LYMPHOCYTIC LEUKAEMIA
     Dosage: 1.9 MG/M2, UNK AND 1.8 TO 1.9 MG
     Route: 065
     Dates: start: 20180621
  11. CYCLIZINE [Concomitant]
     Active Substance: CYCLIZINE
     Dosage: 50 MG, UNK
     Route: 042
     Dates: start: 20180625, end: 20180625
  12. METOCLOPRAMIDE. [Concomitant]
     Active Substance: METOCLOPRAMIDE
     Dosage: 10 MG, UNK
     Route: 042
     Dates: start: 20180626, end: 20180626
  13. PARACETAMOL [Concomitant]
     Active Substance: ACETAMINOPHEN
     Dosage: 400 TO 600 MG, UNK
     Route: 042
     Dates: start: 20180621, end: 20180722
  14. GLUCOSE [Concomitant]
     Active Substance: DEXTROSE
     Dosage: UNK
     Route: 042
     Dates: start: 20180621, end: 20180706
  15. RANITIDINE. [Concomitant]
     Active Substance: RANITIDINE
     Dosage: 50 TO 75 MG, UNK
     Dates: start: 20180623, end: 20180712
  16. AMIKACIN. [Concomitant]
     Active Substance: AMIKACIN
     Indication: INFECTION IN AN IMMUNOCOMPROMISED HOST
     Dosage: 740-800 MG, UNK
     Route: 042
     Dates: start: 20180615, end: 20180811
  17. DAUNORUBICIN [Suspect]
     Active Substance: DAUNORUBICIN
     Indication: ACUTE LYMPHOCYTIC LEUKAEMIA
     Dosage: 32.5 MG, UNK
     Route: 065
     Dates: start: 20180621
  18. MOVICOL [Concomitant]
     Active Substance: POLYETHYLENE GLYCOL 3350\POTASSIUM CHLORIDE\SODIUM BICARBONATE\SODIUM CHLORIDE
     Dosage: 1 UNK, UNK
     Route: 048
     Dates: start: 20180618, end: 20180624
  19. PIPERACILLIN AND TAZOBACTAM [Concomitant]
     Active Substance: PIPERACILLIN SODIUM\TAZOBACTAM SODIUM
     Dosage: 3330 MUG, UNK
     Route: 042
     Dates: start: 2018, end: 20180703
  20. LACTULOSE. [Concomitant]
     Active Substance: LACTULOSE
     Dosage: 5 ML, UNK
     Route: 048
     Dates: start: 20180616, end: 20180623
  21. MERCAPTOPURINE. [Suspect]
     Active Substance: MERCAPTOPURINE
     Indication: ACUTE LYMPHOCYTIC LEUKAEMIA
     Dosage: 72 MG, UNK
     Route: 065
     Dates: start: 20180807
  22. CYTARABINE. [Suspect]
     Active Substance: CYTARABINE
     Indication: ACUTE LYMPHOCYTIC LEUKAEMIA
     Dosage: 60-90 MG UNK AND 90 MUG, UNK
     Route: 042
     Dates: start: 20180622
  23. METRONIDAZOLE. [Concomitant]
     Active Substance: METRONIDAZOLE
     Dosage: 300 MG, UNK
     Route: 042
     Dates: start: 20180626, end: 20180701
  24. PLATELETS [Concomitant]
     Active Substance: HUMAN PLATELET, ALLOGENIC
     Dosage: 1 UNK, UNK
     Route: 042
     Dates: start: 20180617, end: 20180829
  25. TEICOPLANIN [Concomitant]
     Active Substance: TEICOPLANIN
     Dosage: 370 MG, UNK
     Route: 042
     Dates: start: 20180723, end: 20180727
  26. DEXAMETHASONE. [Suspect]
     Active Substance: DEXAMETHASONE
     Indication: ACUTE LYMPHOCYTIC LEUKAEMIA
     Dosage: 4 MG, UNK
     Route: 065
     Dates: start: 20180621
  27. METHOTREXATE. [Suspect]
     Active Substance: METHOTREXATE
     Indication: ACUTE LYMPHOCYTIC LEUKAEMIA
     Dosage: 15 -60 MG, UNK
     Route: 065
     Dates: start: 20180629
  28. HYDROCORTISONE. [Suspect]
     Active Substance: HYDROCORTISONE
     Indication: ACUTE LYMPHOCYTIC LEUKAEMIA
     Dosage: 60 MG, UNK
     Route: 065
     Dates: start: 20180622
  29. ALLOPURINOL. [Concomitant]
     Active Substance: ALLOPURINOL
     Dosage: 100 MG, UNK
     Route: 048
     Dates: start: 20180614, end: 20180625
  30. AZITHROMYCIN ANHYDROUS. [Concomitant]
     Active Substance: AZITHROMYCIN ANHYDROUS
     Dosage: 400 MG, UNK
     Route: 048
     Dates: start: 20180620, end: 20180624
  31. CEFTAZIDIME. [Concomitant]
     Active Substance: CEFTAZIDIME
     Dosage: 2000 MG, UNK
     Route: 042
     Dates: start: 20180710, end: 20180730
  32. SALINE [Concomitant]
     Active Substance: SODIUM CHLORIDE
     Dosage: UNK
     Route: 042
     Dates: start: 20180621, end: 20180706

REACTIONS (1)
  - Infection in an immunocompromised host [Recovered/Resolved]

NARRATIVE: CASE EVENT DATE: 20180827
